FAERS Safety Report 10721708 (Version 1)
Quarter: 2015Q1

REPORT INFORMATION
  Report Type: Spontaneous
  Country: NZ (occurrence: NZ)
  Receive Date: 20150119
  Receipt Date: 20150119
  Transmission Date: 20150721
  Serious: Yes (Hospitalization)
  Sender: FDA-Public Use
  Company Number: NZ-MYLANLABS-2015M1000678

PATIENT

DRUGS (3)
  1. SALBUTAMOL [Suspect]
     Active Substance: ALBUTEROL
     Dosage: 0.2 MICROG/KG/MIN
     Route: 041
  2. SALBUTAMOL [Suspect]
     Active Substance: ALBUTEROL
     Indication: ASTHMA
     Dosage: 5MG
     Route: 040
  3. DEXAMETHASONE. [Concomitant]
     Active Substance: DEXAMETHASONE
     Indication: ASTHMA
     Dosage: 8MG
     Route: 040

REACTIONS (5)
  - Myocardial depression [Unknown]
  - Pulmonary oedema [Recovered/Resolved]
  - Vasodilatation [Unknown]
  - Lactic acidosis [Unknown]
  - Tachycardia [Recovered/Resolved]
